FAERS Safety Report 7534115-6 (Version None)
Quarter: 2011Q2

REPORT INFORMATION
  Report Type: 
  Country: None (occurrence: None)
  Receive Date: 20110608
  Receipt Date: 20061019
  Transmission Date: 20111010
  Serious: Yes (Other)
  Sender: FDA-Public Use
  Company Number: PHMT2006CA01701

PATIENT
  Sex: Female

DRUGS (3)
  1. DIOVAN [Suspect]
     Dosage: 160 MG, UNK
     Dates: end: 20060817
  2. DIOVAN HCT [Suspect]
     Dosage: 160/12.5
     Route: 048
     Dates: start: 20060818
  3. DIURETICS [Concomitant]

REACTIONS (1)
  - URINARY TRACT INFECTION [None]
